FAERS Safety Report 5999977-2 (Version None)
Quarter: 2008Q4

REPORT INFORMATION
  Report Type: 
  Country: None (occurrence: None)
  Receive Date: 20081211
  Receipt Date: 20080714
  Transmission Date: 20090506
  Serious: No
  Sender: FDA-Public Use
  Company Number: US024100

PATIENT
  Age: 72 Year
  Sex: Male
  Weight: 106.1417 kg

DRUGS (11)
  1. TREANDA [Suspect]
     Indication: CHRONIC LEUKAEMIA
     Dosage: 200 MG DAY ONE AND TWO OF 28 DAY CYCLE QD INTRAVENOUS
     Route: 042
     Dates: start: 20080527, end: 20080528
  2. TREANDA [Suspect]
     Indication: CHRONIC LEUKAEMIA
     Dosage: 200 MG DAY ONE AND TWO OF CYCLE TWO QD INTRAVENOUS
     Route: 042
     Dates: start: 20080624, end: 20080625
  3. ZYRTEC [Concomitant]
  4. PROZAC [Concomitant]
  5. FLOMAX [Concomitant]
  6. PACERONE [Concomitant]
  7. LASIX [Concomitant]
  8. COUMADIN [Concomitant]
  9. ALTACE [Concomitant]
  10. ALOXI [Concomitant]
  11. DEXAMETHASONE [Concomitant]

REACTIONS (2)
  - PLATELET COUNT DECREASED [None]
  - WHITE BLOOD CELL COUNT DECREASED [None]
